FAERS Safety Report 7156593-7 (Version None)
Quarter: 2010Q4

REPORT INFORMATION
  Report Type: 
  Country: None (occurrence: None)
  Receive Date: 20101214
  Receipt Date: 20091104
  Transmission Date: 20110411
  Serious: No
  Sender: FDA-Public Use
  Company Number: US-ASTRAZENECA-2009SE24403

PATIENT
  Age: 72 Year
  Sex: Male

DRUGS (5)
  1. CRESTOR [Suspect]
     Route: 048
     Dates: start: 20090716, end: 20090101
  2. ALLOPURINOL [Suspect]
     Dates: start: 20090804
  3. ASPIRIN [Concomitant]
  4. LORADINE [Concomitant]
  5. MULTI-VITAMIN [Concomitant]

REACTIONS (1)
  - THROMBOCYTOPENIA [None]
